FAERS Safety Report 20394992 (Version 2)
Quarter: 2022Q1

REPORT INFORMATION
  Report Type: Report from Study
  Country: DE (occurrence: DE)
  Receive Date: 20220130
  Receipt Date: 20220205
  Transmission Date: 20220423
  Serious: Yes (Hospitalization, Other)
  Sender: FDA-Public Use
  Company Number: DE-BIOGEN-2020BI00949799

PATIENT
  Age: 57 Year
  Sex: Female

DRUGS (3)
  1. TECFIDERA [Suspect]
     Active Substance: DIMETHYL FUMARATE
     Indication: Multiple sclerosis
     Dosage: MAINTENANCE DOSE
     Route: 048
     Dates: start: 201706
  2. TECFIDERA [Suspect]
     Active Substance: DIMETHYL FUMARATE
     Dosage: MAINTENANCE DOSE
     Route: 048
     Dates: start: 201706, end: 202107
  3. CORTISONE [Concomitant]
     Active Substance: CORTISONE
     Indication: Multiple sclerosis relapse
     Route: 065

REACTIONS (6)
  - Meningitis bacterial [Recovered/Resolved]
  - Cerebral haemorrhage [Recovered/Resolved with Sequelae]
  - Coma [Unknown]
  - Deafness unilateral [Unknown]
  - Mobility decreased [Unknown]
  - Speech disorder [Unknown]

NARRATIVE: CASE EVENT DATE: 20201101
